FAERS Safety Report 14700069 (Version 1)
Quarter: 2018Q1

REPORT INFORMATION
  Report Type: Spontaneous
  Country: ES (occurrence: ES)
  Receive Date: 20180330
  Receipt Date: 20180330
  Transmission Date: 20180509
  Serious: Yes (Hospitalization)
  Sender: FDA-Public Use
  Company Number: ES-TEVA-2018-ES-874363

PATIENT
  Age: 80 Year
  Sex: Female

DRUGS (3)
  1. ENALAPRIL (2142A) [Interacting]
     Active Substance: ENALAPRIL
     Indication: HYPERTENSION
     Dosage: 10MG EACH 24 HORAS
     Route: 048
  2. PARACETAMOL 650MG [Concomitant]
     Indication: ARTHRALGIA
     Dosage: 650MG EVERY 8 HOURS IF ACCURATE FOR PAIN
     Route: 048
  3. MOXIFLOXACINO (1119A) [Suspect]
     Active Substance: MOXIFLOXACIN HYDROCHLORIDE
     Indication: RESPIRATORY TRACT INFECTION
     Dosage: 400MG EACH 24 HORAS
     Route: 048

REACTIONS (2)
  - Drug interaction [Unknown]
  - Pancreatitis [Recovered/Resolved]
